FAERS Safety Report 23222689 (Version 1)
Quarter: 2023Q4

REPORT INFORMATION
  Report Type: Spontaneous
  Country: US (occurrence: US)
  Receive Date: 20231123
  Receipt Date: 20231123
  Transmission Date: 20240110
  Serious: No
  Sender: FDA-Public Use
  Company Number: US-KERYX BIOPHARMACEUTICALS INC.-US-AKEB-23-000744

PATIENT
  Sex: Male
  Weight: 92 kg

DRUGS (2)
  1. AURYXIA [Suspect]
     Active Substance: TETRAFERRIC TRICITRATE DECAHYDRATE
     Indication: Hyperphosphataemia
     Dosage: 2 DOSAGE FORM, TID
     Route: 065
     Dates: start: 202203
  2. AURYXIA [Suspect]
     Active Substance: TETRAFERRIC TRICITRATE DECAHYDRATE
     Dosage: 3 DOSAGE FORM, TID
     Route: 065

REACTIONS (1)
  - Drug ineffective [Unknown]
